FAERS Safety Report 11236924 (Version 2)
Quarter: 2015Q3

REPORT INFORMATION
  Report Type: Spontaneous
  Country: US (occurrence: US)
  Receive Date: 20150703
  Receipt Date: 20150811
  Transmission Date: 20151125
  Serious: Yes (Other)
  Sender: FDA-Public Use
  Company Number: US-JNJCP-30000290005

PATIENT
  Sex: Male

DRUGS (1)
  1. NEUTROGENA AGE SHIELD FACE SPF 110 [Suspect]
     Active Substance: AVOBENZONE\HOMOSALATE\OCTISALATE\OCTOCRYLENE\OXYBENZONE
     Indication: PROPHYLAXIS
     Dosage: MORE THAN A QUARTER EVERY TWO HOURS
     Route: 061
     Dates: end: 20150610

REACTIONS (2)
  - Precancerous skin lesion [Unknown]
  - Drug ineffective [Unknown]

NARRATIVE: CASE EVENT DATE: 20150610
